FAERS Safety Report 24435067 (Version 4)
Quarter: 2024Q4

REPORT INFORMATION
  Report Type: Spontaneous
  Country: JP (occurrence: JP)
  Receive Date: 20241014
  Receipt Date: 20241115
  Transmission Date: 20250114
  Serious: Yes (Hospitalization, Other)
  Sender: MERCK
  Company Number: JP-MSD-M2024-41000

PATIENT
  Age: 64 Year
  Sex: Male

DRUGS (10)
  1. PREVYMIS [Suspect]
     Active Substance: LETERMOVIR
     Indication: Antiviral prophylaxis
     Dosage: 480 MILLIGRAM
     Route: 048
     Dates: start: 202305, end: 202310
  2. FENTANYL CITRATE [Suspect]
     Active Substance: FENTANYL CITRATE
     Indication: Mucosal disorder
     Dosage: UNK
     Route: 065
     Dates: start: 20230616, end: 20230625
  3. ACYCLOVIR [Concomitant]
     Active Substance: ACYCLOVIR
     Dosage: UNK
     Route: 065
  4. FLUCONAZOLE [Concomitant]
     Active Substance: FLUCONAZOLE
     Dosage: UNK
     Route: 065
  5. VORICONAZOLE [Concomitant]
     Active Substance: VORICONAZOLE
     Dosage: UNK
     Route: 065
  6. FLUDARABINE PHOSPHATE [Concomitant]
     Active Substance: FLUDARABINE PHOSPHATE
     Indication: Allogenic stem cell transplantation
     Dosage: 30 MILLIGRAM/SQ. METER
     Route: 065
     Dates: start: 20230526, end: 20230531
  7. BUSULFAN [Concomitant]
     Active Substance: BUSULFAN
     Indication: Allogenic stem cell transplantation
     Dosage: 3.2 MILLIGRAM/KILOGRAM
     Route: 065
     Dates: start: 20230529, end: 20230530
  8. TACROLIMUS [Concomitant]
     Active Substance: TACROLIMUS
     Indication: Immunosuppressant drug therapy
     Dosage: UNK
     Route: 051
     Dates: start: 20230601
  9. CYCLOPHOSPHAMIDE [Concomitant]
     Active Substance: CYCLOPHOSPHAMIDE
     Indication: Immunosuppressant drug therapy
     Dosage: 50 MILLIGRAM/KILOGRAM
     Route: 065
     Dates: start: 20230605, end: 20230606
  10. MYCOPHENOLATE MOFETIL [Concomitant]
     Active Substance: MYCOPHENOLATE MOFETIL
     Indication: Immunosuppressant drug therapy
     Dosage: 2000 MILLIGRAM/DAY
     Route: 065
     Dates: start: 20230607, end: 20230717

REACTIONS (9)
  - Cytopenia [Unknown]
  - Mucosal disorder [Recovering/Resolving]
  - Staphylococcal bacteraemia [Recovering/Resolving]
  - Human herpesvirus 6 viraemia [Recovering/Resolving]
  - Hallucination, visual [Recovering/Resolving]
  - Altered state of consciousness [Recovering/Resolving]
  - Cytomegalovirus test positive [Recovering/Resolving]
  - Toxicity to various agents [Unknown]
  - Therapeutic product effect incomplete [Unknown]

NARRATIVE: CASE EVENT DATE: 20230101
